FAERS Safety Report 4355604-1 (Version None)
Quarter: 2004Q2

REPORT INFORMATION
  Report Type: 
  Country: None (occurrence: None)
  Receive Date: 20040510
  Receipt Date: 20040503
  Transmission Date: 20050107
  Serious: Yes (Life-Threatening, Hospitalization)
  Sender: FDA-Public Use
  Company Number: 2004008000

PATIENT
  Age: 33 Year
  Sex: Female
  Weight: 130 kg

DRUGS (12)
  1. SEROXAT [Suspect]
     Dosage: 29TAB SINGLE DOSE
     Route: 048
     Dates: start: 20040502, end: 20040502
  2. STELAZINE [Concomitant]
     Dosage: 99TAB SINGLE DOSE
     Route: 048
     Dates: start: 20040502, end: 20040502
  3. SEROQUEL [Concomitant]
     Dosage: 68TAB SINGLE DOSE
     Route: 048
     Dates: start: 20040502, end: 20040502
  4. VITAMIN C [Concomitant]
     Dosage: 10TAB SINGLE DOSE
     Route: 048
     Dates: start: 20040502, end: 20040502
  5. TAXILAN [Concomitant]
     Dosage: 4TAB SINGLE DOSE
     Route: 048
     Dates: start: 20040502, end: 20040502
  6. DYTIDE H [Concomitant]
     Dosage: 9TAB SINGLE DOSE
     Route: 048
     Dates: start: 20040502, end: 20040502
  7. METOPROLOL SUCCINATE [Concomitant]
     Dosage: 12TAB SINGLE DOSE
     Route: 048
     Dates: start: 20040502, end: 20040502
  8. EUTHYROX [Concomitant]
     Dosage: 25TAB SINGLE DOSE
     Route: 048
     Dates: start: 20040502, end: 20040502
  9. IBUHEXAL [Concomitant]
     Dosage: 2TAB SINGLE DOSE
     Route: 048
     Dates: start: 20040502, end: 20040502
  10. PARACETAMOL [Concomitant]
     Dosage: 10TAB SINGLE DOSE
     Route: 048
     Dates: start: 20040502, end: 20040502
  11. DOLOVISANO [Concomitant]
     Dosage: 30TAB SINGLE DOSE
     Route: 048
     Dates: start: 20040502, end: 20040502
  12. BUSCOPAN [Concomitant]
     Dosage: 1TAB SINGLE DOSE
     Route: 048
     Dates: start: 20040502, end: 20040502

REACTIONS (4)
  - INTENTIONAL OVERDOSE [None]
  - MYDRIASIS [None]
  - STUPOR [None]
  - SUICIDE ATTEMPT [None]
